FAERS Safety Report 4899106-2 (Version None)
Quarter: 2006Q1

REPORT INFORMATION
  Report Type: 
  Country: None (occurrence: None)
  Receive Date: 20060202
  Receipt Date: 20050610
  Transmission Date: 20060701
  Serious: Yes (Death)
  Sender: FDA-Public Use
  Company Number: PHEH2005US06604

PATIENT
  Age: 56 Year
  Sex: Female

DRUGS (3)
  1. ZOMETA [Suspect]
     Indication: BREAST CANCER METASTATIC
     Dosage: 4MG ONE SINGLE DOSE
     Dates: start: 20050404, end: 20050404
  2. NAVELBINE [Concomitant]
     Indication: BREAST CANCER STAGE IV
     Dosage: 25 MG/M2, DAYS 1, 8, 15
     Dates: start: 20041129, end: 20050509
  3. DECADRON [Concomitant]
     Indication: ANTIEMETIC SUPPORTIVE CARE
     Dosage: 4 -16 MG, DAYS 1, 8, 15 PRE CHEMOTHERAPY
     Dates: start: 20041129, end: 20050509

REACTIONS (4)
  - GINGIVAL INFECTION [None]
  - MALIGNANT NEOPLASM PROGRESSION [None]
  - ORAL SOFT TISSUE DISORDER [None]
  - PAIN IN JAW [None]
